FAERS Safety Report 12460635 (Version 2)
Quarter: 2016Q2

REPORT INFORMATION
  Report Type: Report from Study
  Country: TR (occurrence: TR)
  Receive Date: 20160613
  Receipt Date: 20160617
  Transmission Date: 20160815
  Serious: Yes (Death, Hospitalization)
  Sender: FDA-Public Use
  Company Number: TR-ABBVIE-16P-161-1647734-00

PATIENT
  Age: 67 Year
  Sex: Female
  Weight: 39 kg

DRUGS (3)
  1. SEROQUEL [Concomitant]
     Active Substance: QUETIAPINE FUMARATE
     Indication: PARKINSON^S DISEASE
     Route: 048
  2. AMANTADINE SULFATE [Concomitant]
     Active Substance: AMANTADINE SULFATE
     Indication: PARKINSON^S DISEASE
     Route: 048
  3. DUODOPA [Suspect]
     Active Substance: CARBIDOPA\LEVODOPA
     Indication: PARKINSON^S DISEASE
     Dosage: MORNING DOSE: 9.6 ML;CONTINUOUS DOSE:4 ML;EXTRA DOSE:1 ML
     Route: 050
     Dates: start: 20150804

REACTIONS (10)
  - Leukaemia [Fatal]
  - Haemoglobin decreased [Not Recovered/Not Resolved]
  - Myocardial infarction [Fatal]
  - Weight decreased [Not Recovered/Not Resolved]
  - White blood cell count decreased [Not Recovered/Not Resolved]
  - Sepsis [Fatal]
  - Respiratory failure [Fatal]
  - Renal failure [Fatal]
  - Hallucination [Not Recovered/Not Resolved]
  - Hypophagia [Not Recovered/Not Resolved]

NARRATIVE: CASE EVENT DATE: 201605
